FAERS Safety Report 25958504 (Version 1)
Quarter: 2025Q4

REPORT INFORMATION
  Report Type: Spontaneous
  Country: US (occurrence: US)
  Receive Date: 20251024
  Receipt Date: 20251024
  Transmission Date: 20260117
  Serious: Yes (Other)
  Sender: PFIZER
  Company Number: US-PFIZER INC-202500209838

PATIENT
  Age: 71 Year
  Sex: Female
  Weight: 107.95 kg

DRUGS (1)
  1. IBRANCE [Suspect]
     Active Substance: PALBOCICLIB
     Indication: Breast cancer metastatic
     Dosage: 3 WEEKS ON, 1 WEEK OFF

REACTIONS (1)
  - Vascular dementia [Unknown]

NARRATIVE: CASE EVENT DATE: 20250701
